FAERS Safety Report 10218897 (Version 1)
Quarter: 2014Q2

REPORT INFORMATION
  Report Type: Report from Study
  Country: JP (occurrence: JP)
  Receive Date: 20140605
  Receipt Date: 20140605
  Transmission Date: 20141212
  Serious: Yes (Hospitalization)
  Sender: FDA-Public Use
  Company Number: JP-SA-2014SA070241

PATIENT
  Age: 55 Year
  Sex: Female
  Weight: 77 kg

DRUGS (7)
  1. THYMOGLOBULINE [Suspect]
     Indication: APLASTIC ANAEMIA
     Route: 042
     Dates: start: 20131114, end: 20131118
  2. CYCLOSPORINE [Concomitant]
     Indication: APLASTIC ANAEMIA
     Dates: start: 20130310, end: 20131113
  3. GRANULOCYTE COLONY-STIMULATING FACTOR NOS [Concomitant]
     Indication: APLASTIC ANAEMIA
     Dates: start: 20130206, end: 20131108
  4. PREDNISOLONE [Concomitant]
     Indication: APLASTIC ANAEMIA
     Dates: start: 20131114, end: 20140228
  5. ITRACONAZOLE [Concomitant]
     Indication: PROPHYLAXIS
     Dates: start: 20131114, end: 20140228
  6. LEVOFLOXACIN [Concomitant]
     Indication: PROPHYLAXIS
     Dates: start: 20131114, end: 20131128
  7. VALACICLOVIR [Concomitant]
     Indication: PROPHYLAXIS
     Dates: start: 20131114, end: 20131129

REACTIONS (1)
  - Shock [Recovered/Resolved]
